FAERS Safety Report 20128865 (Version 2)
Quarter: 2021Q4

REPORT INFORMATION
  Report Type: Spontaneous
  Country: HR (occurrence: HR)
  Receive Date: 20211130
  Receipt Date: 20211201
  Transmission Date: 20220303
  Serious: Yes (Life-Threatening, Hospitalization, Other)
  Sender: FDA-Public Use
  Company Number: HR-CELLTRION INC.-2021HR014840

PATIENT

DRUGS (2)
  1. RITUXIMAB [Suspect]
     Active Substance: RITUXIMAB
     Indication: Anti-neutrophil cytoplasmic antibody positive vasculitis
     Dosage: UNK
     Route: 065
     Dates: start: 202102
  2. RITUXIMAB [Suspect]
     Active Substance: RITUXIMAB
     Indication: IgA nephropathy

REACTIONS (4)
  - Acute respiratory distress syndrome [Recovering/Resolving]
  - COVID-19 pneumonia [Recovering/Resolving]
  - COVID-19 [Recovered/Resolved]
  - Off label use [Unknown]

NARRATIVE: CASE EVENT DATE: 20210501
